FAERS Safety Report 15884400 (Version 1)
Quarter: 2019Q1

REPORT INFORMATION
  Report Type: Spontaneous
  Country: US (occurrence: US)
  Receive Date: 20190129
  Receipt Date: 20190129
  Transmission Date: 20190417
  Serious: No
  Sender: FDA-Public Use
  Company Number: US-PFIZER INC-2019040481

PATIENT
  Age: 56 Year
  Sex: Female
  Weight: 77.11 kg

DRUGS (1)
  1. AMLODIPINE BESILATE [Suspect]
     Active Substance: AMLODIPINE BESYLATE
     Indication: HYPERTENSION
     Dosage: 10 MG, 1X/DAY ;(10 MG TABLET BY MOUTH ONCE A DAY)
     Route: 048
     Dates: start: 2017

REACTIONS (3)
  - Dizziness [Recovered/Resolved]
  - Chest pain [Recovered/Resolved]
  - Drug hypersensitivity [Recovered/Resolved]

NARRATIVE: CASE EVENT DATE: 2017
